FAERS Safety Report 6855164-7 (Version None)
Quarter: 2010Q3

REPORT INFORMATION
  Report Type: 
  Country: None (occurrence: None)
  Receive Date: 20100717
  Receipt Date: 20090907
  Transmission Date: 20110219
  Serious: No
  Sender: FDA-Public Use
  Company Number: US-PFIZER INC-2007101569

PATIENT
  Sex: Female
  Weight: 70.5 kg

DRUGS (1)
  1. CHANTIX [Suspect]
     Dates: start: 20070101, end: 20071101

REACTIONS (5)
  - DEPRESSION [None]
  - DRUG EFFECT DELAYED [None]
  - DYSGEUSIA [None]
  - MIGRAINE [None]
  - NAUSEA [None]
